FAERS Safety Report 5286688-4 (Version None)
Quarter: 2007Q1

REPORT INFORMATION
  Report Type: 
  Country: None (occurrence: None)
  Receive Date: 20070116
  Receipt Date: 20061103
  Transmission Date: 20070707
  Serious: No
  Sender: FDA-Public Use
  Company Number: 2006SP003918

PATIENT
  Age: 85 Year
  Sex: Male
  Weight: 78.0187 kg

DRUGS (9)
  1. LUNESTA [Suspect]
     Indication: INSOMNIA
     Dosage: SEE IMAGE
     Route: 048
     Dates: start: 20060101, end: 20060101
  2. LUNESTA [Suspect]
     Indication: INSOMNIA
     Dosage: SEE IMAGE
     Route: 048
     Dates: start: 20061201
  3. LOPRESSOR [Concomitant]
  4. VALSARTAN [Concomitant]
  5. TAMBOCOR [Concomitant]
  6. SIMVASTATIN [Concomitant]
  7. AMLODIPINE BESYLATE [Concomitant]
  8. HYDROCHLOROTHIAZIDE [Concomitant]
  9. ASPIRIN [Concomitant]

REACTIONS (3)
  - DRUG EFFECT DECREASED [None]
  - DRUG INEFFECTIVE [None]
  - MIDDLE INSOMNIA [None]
